FAERS Safety Report 14493962 (Version 2)
Quarter: 2018Q1

REPORT INFORMATION
  Report Type: Spontaneous
  Country: JP (occurrence: JP)
  Receive Date: 20180206
  Receipt Date: 20180215
  Transmission Date: 20180509
  Serious: Yes (Other)
  Sender: FDA-Public Use
  Company Number: JP-EISAI MEDICAL RESEARCH-EC-2018-035858

PATIENT
  Age: 84 Year
  Sex: Female

DRUGS (9)
  1. TROCHES (COMP.) [Concomitant]
     Indication: PHARYNGITIS
     Dosage: UNKNOWN
     Route: 048
     Dates: start: 20171212
  2. AZUNOL GARGLE LIQUID [Concomitant]
     Indication: DRY MOUTH
     Dosage: UNKNOWN
     Route: 049
     Dates: start: 20171127
  3. CLARITIN [Concomitant]
     Active Substance: LORATADINE
     Indication: RHINITIS ALLERGIC
     Route: 048
     Dates: start: 20170112
  4. SALIVEHT [Concomitant]
     Indication: SJOGREN^S SYNDROME
     Route: 049
     Dates: start: 20171102
  5. MUCODYNE [Concomitant]
     Active Substance: CARBOCYSTEINE
     Indication: PHARYNGITIS
     Route: 048
     Dates: start: 20171228
  6. TSUMURA BYAKKOKANINJINTO EXTRACT [Concomitant]
     Indication: DRY MOUTH
     Route: 048
     Dates: start: 20171102
  7. SALAGEN [Suspect]
     Active Substance: PILOCARPINE HYDROCHLORIDE
     Indication: DRY MOUTH
     Route: 048
     Dates: start: 20180119, end: 20180119
  8. SALAGEN [Suspect]
     Active Substance: PILOCARPINE HYDROCHLORIDE
     Indication: SJOGREN^S SYNDROME
  9. SURGAM [Concomitant]
     Active Substance: TIAPROFENIC ACID
     Indication: PHARYNGITIS
     Dosage: UNKNOWN
     Route: 048
     Dates: start: 20171212

REACTIONS (5)
  - Salivary hypersecretion [Recovered/Resolved]
  - Hyperhidrosis [Recovered/Resolved]
  - Blood pressure increased [Recovered/Resolved]
  - Tremor [Recovered/Resolved]
  - Body temperature decreased [Recovered/Resolved]

NARRATIVE: CASE EVENT DATE: 20180119
